FAERS Safety Report 9065311 (Version 1)
Quarter: 2013Q1

REPORT INFORMATION
  Report Type: Spontaneous
  Country: US (occurrence: US)
  Receive Date: 20130214
  Receipt Date: 20130214
  Transmission Date: 20140127
  Serious: Yes (Other)
  Sender: FDA-Public Use
  Company Number: US-BAYER-2013-015783

PATIENT
  Sex: Female

DRUGS (1)
  1. MIRENA [Suspect]
     Dosage: 20 MCG/24HR, CONT
     Route: 015
     Dates: start: 2011

REACTIONS (9)
  - Appendicectomy [None]
  - Feeling abnormal [None]
  - Menstruation irregular [None]
  - Nausea [None]
  - Mood swings [None]
  - Pollakiuria [None]
  - Device issue [None]
  - Procedural pain [None]
  - Abdominal pain [None]
